FAERS Safety Report 6092025-8 (Version None)
Quarter: 2009Q1

REPORT INFORMATION
  Report Type: 
  Country: None (occurrence: None)
  Receive Date: 20090225
  Receipt Date: 20090213
  Transmission Date: 20090719
  Serious: Yes (Hospitalization)
  Sender: FDA-Public Use
  Company Number: BR-BIOGENIDEC-2008BI023313

PATIENT
  Age: 23 Year
  Sex: Female

DRUGS (4)
  1. AVONEX [Suspect]
     Indication: MULTIPLE SCLEROSIS
     Route: 030
     Dates: start: 20020901, end: 20070701
  2. AVONEX [Suspect]
     Route: 030
     Dates: start: 20070901, end: 20080701
  3. AVONEX [Suspect]
     Route: 030
     Dates: start: 20080919, end: 20081201
  4. AMYTRIL [Concomitant]
     Indication: DEPRESSION
     Route: 048

REACTIONS (10)
  - BACK PAIN [None]
  - CENTRAL NERVOUS SYSTEM LESION [None]
  - DEPRESSION [None]
  - DRUG INEFFECTIVE [None]
  - INFLUENZA LIKE ILLNESS [None]
  - INJECTION SITE PAIN [None]
  - MULTIPLE SCLEROSIS RELAPSE [None]
  - PAIN [None]
  - PNEUMONIA [None]
  - TREMOR [None]
